FAERS Safety Report 25146123 (Version 1)
Quarter: 2025Q2

REPORT INFORMATION
  Report Type: Spontaneous
  Country: US (occurrence: None)
  Receive Date: 20250331
  Receipt Date: 20250331
  Transmission Date: 20250717
  Serious: Yes (Hospitalization, Other)
  Sender: FDA-CTU
  Company Number: None

PATIENT
  Age: 57 Year
  Sex: Female

DRUGS (2)
  1. ICATIBANT [Suspect]
     Active Substance: ICATIBANT ACETATE
     Indication: Complement factor abnormal
     Dosage: 30MG Q6 H PRN ?
  2. RUCONEST [Suspect]
     Active Substance: CONESTAT ALFA

REACTIONS (8)
  - Wrong product administered [None]
  - Abdominal pain [None]
  - Nausea [None]
  - Vomiting [None]
  - Pharyngeal swelling [None]
  - Ear infection [None]
  - Deafness [None]
  - Spinal operation [None]
